FAERS Safety Report 5071436-3 (Version None)
Quarter: 2006Q3

REPORT INFORMATION
  Report Type: 
  Country: None (occurrence: None)
  Receive Date: 20060804
  Receipt Date: 20030402
  Transmission Date: 20061208
  Serious: Yes (Disabling)
  Sender: FDA-Public Use
  Company Number: CA-GLAXOSMITHKLINE-A0403986A

PATIENT
  Sex: Male

DRUGS (1)
  1. PAXIL [Suspect]
     Route: 048
     Dates: start: 20010701, end: 20020101

REACTIONS (17)
  - ABNORMAL BEHAVIOUR [None]
  - ARTHRITIS [None]
  - BRAIN DAMAGE [None]
  - DIARRHOEA [None]
  - DRUG DEPENDENCE [None]
  - DRUG TOXICITY [None]
  - DRUG WITHDRAWAL SYNDROME [None]
  - HYPERHIDROSIS [None]
  - HYPOAESTHESIA [None]
  - MANIA [None]
  - MIGRAINE [None]
  - NERVOUS SYSTEM DISORDER [None]
  - NEUROLEPTIC MALIGNANT SYNDROME [None]
  - PARALYSIS [None]
  - PARKINSONISM [None]
  - SEROTONIN SYNDROME [None]
  - TENSION HEADACHE [None]
